FAERS Safety Report 6983167-0 (Version None)
Quarter: 2010Q3

REPORT INFORMATION
  Report Type: 
  Country: None (occurrence: None)
  Receive Date: 20100914
  Receipt Date: 20100623
  Transmission Date: 20110219
  Serious: Yes (Other)
  Sender: FDA-Public Use
  Company Number: US-PFIZER INC-2010078680

PATIENT
  Sex: Female
  Weight: 53.061 kg

DRUGS (7)
  1. LYRICA [Suspect]
     Indication: FIBROMYALGIA
     Dosage: 150 MG, 3X/DAY
     Route: 048
  2. PROMAZINE [Concomitant]
     Indication: ANXIETY
     Dosage: UNK, 3X/DAY
     Route: 048
  3. SOMA [Concomitant]
     Indication: INTERVERTEBRAL DISC PROTRUSION
     Dosage: UNK
     Route: 048
  4. PROMETRIUM [Concomitant]
     Indication: MENOPAUSE
     Dosage: 200 MG, UNK
     Route: 048
  5. CYMBALTA [Concomitant]
     Indication: FIBROMYALGIA
     Dosage: 60 MG, 2X/DAY
     Route: 048
  6. PROVIGIL [Concomitant]
     Indication: FATIGUE
     Dosage: 200 MG, 1X/DAY
     Route: 048
  7. PROVIGIL [Concomitant]
     Indication: FIBROMYALGIA

REACTIONS (2)
  - MUSCLE SPASMS [None]
  - PARAESTHESIA [None]
